FAERS Safety Report 4363857-9 (Version None)
Quarter: 2004Q2

REPORT INFORMATION
  Report Type: 
  Country: None (occurrence: None)
  Receive Date: 20040521
  Receipt Date: 20040521
  Transmission Date: 20050107
  Serious: No
  Sender: FDA-Public Use
  Company Number: None

PATIENT
  Sex: Female
  Weight: 19.5047 kg

DRUGS (1)
  1. METADATE ER [Suspect]
     Indication: ATTENTION DEFICIT/HYPERACTIVITY DISORDER
     Dosage: ONE PO QD
     Route: 048
     Dates: start: 20040511, end: 20040521

REACTIONS (3)
  - ABNORMAL BEHAVIOUR [None]
  - DISTRACTIBILITY [None]
  - PHARMACEUTICAL PRODUCT COMPLAINT [None]
